FAERS Safety Report 10008817 (Version 1)
Quarter: 2014Q1

REPORT INFORMATION
  Report Type: Spontaneous
  Country: US (occurrence: US)
  Receive Date: 20140312
  Receipt Date: 20140312
  Transmission Date: 20141002
  Serious: No
  Sender: FDA-Public Use
  Company Number: US-INCYTE CORPORATION-2012IN000680

PATIENT
  Sex: Male

DRUGS (8)
  1. JAKAFI [Suspect]
     Indication: MYELOFIBROSIS
     Dosage: 10 MG, BID
     Dates: start: 20120322
  2. COUMADIN [Concomitant]
  3. SILDENAFIL [Concomitant]
  4. SPIRIVA [Concomitant]
  5. ZOLOFT [Concomitant]
  6. LEVOTHYROXINE [Concomitant]
  7. AMIODARONE [Concomitant]
  8. MORPHINE [Concomitant]

REACTIONS (1)
  - International normalised ratio increased [Not Recovered/Not Resolved]
